FAERS Safety Report 22520923 (Version 1)
Quarter: 2023Q2

REPORT INFORMATION
  Report Type: Report from Study
  Country: FR (occurrence: FR)
  Receive Date: 20230605
  Receipt Date: 20230605
  Transmission Date: 20230721
  Serious: Yes (Other)
  Sender: FDA-Public Use
  Company Number: FR-JNJFOC-20230608862

PATIENT
  Age: 60 Year
  Sex: Female

DRUGS (3)
  1. SPRAVATO [Suspect]
     Active Substance: ESKETAMINE
     Indication: Depression
     Dates: start: 20230307, end: 20230307
  2. SPRAVATO [Suspect]
     Active Substance: ESKETAMINE
     Dates: start: 20230321, end: 20230321
  3. SPRAVATO [Suspect]
     Active Substance: ESKETAMINE
     Dates: start: 20230523, end: 20230523

REACTIONS (2)
  - Suicidal ideation [Recovering/Resolving]
  - Emotional distress [Recovering/Resolving]

NARRATIVE: CASE EVENT DATE: 20230523
